FAERS Safety Report 14352252 (Version 1)
Quarter: 2018Q1

REPORT INFORMATION
  Report Type: Spontaneous
  Country: FR (occurrence: FR)
  Receive Date: 20180104
  Receipt Date: 20180104
  Transmission Date: 20180509
  Serious: Yes (Other)
  Sender: FDA-Public Use
  Company Number: FR-BAYER-2018-001364

PATIENT
  Age: 30 Year
  Sex: Female

DRUGS (1)
  1. MIRENA [Suspect]
     Active Substance: LEVONORGESTREL
     Indication: CONTRACEPTION
     Dosage: 20 MCG/24HR, CONT
     Route: 015

REACTIONS (9)
  - Diffuse alopecia [Not Recovered/Not Resolved]
  - Breast cyst [Not Recovered/Not Resolved]
  - Irritability [Not Recovered/Not Resolved]
  - Loss of libido [Not Recovered/Not Resolved]
  - Fatigue [Not Recovered/Not Resolved]
  - Dry eye [Not Recovered/Not Resolved]
  - Vulvovaginal dryness [Not Recovered/Not Resolved]
  - Headache [Not Recovered/Not Resolved]
  - Memory impairment [Not Recovered/Not Resolved]

NARRATIVE: CASE EVENT DATE: 201606
